FAERS Safety Report 19490564 (Version 2)
Quarter: 2021Q3

REPORT INFORMATION
  Report Type: Spontaneous
  Country: US (occurrence: US)
  Receive Date: 20210705
  Receipt Date: 20210804
  Transmission Date: 20211014
  Serious: No
  Sender: FDA-Public Use
  Company Number: US-LUPIN PHARMACEUTICALS INC.-2021-10620

PATIENT

DRUGS (1)
  1. LEVOTHYROXINE SODIUM TABLETS USP, 50 MCG [Suspect]
     Active Substance: LEVOTHYROXINE SODIUM
     Indication: PRODUCT USED FOR UNKNOWN INDICATION
     Dosage: UNK, PILL
     Route: 065

REACTIONS (3)
  - Product dispensing error [Unknown]
  - Product colour issue [Unknown]
  - No adverse event [Unknown]

NARRATIVE: CASE EVENT DATE: 202106
